FAERS Safety Report 13699985 (Version 1)
Quarter: 2017Q2

REPORT INFORMATION
  Report Type: Spontaneous
  Country: US (occurrence: US)
  Receive Date: 20170629
  Receipt Date: 20170629
  Transmission Date: 20170830
  Serious: Yes (Other)
  Sender: FDA-Public Use
  Company Number: US-SUN PHARMACEUTICAL INDUSTRIES LTD-2015US-104299

PATIENT
  Age: 74 Year
  Sex: Male

DRUGS (2)
  1. CARBOPLATIN. [Suspect]
     Active Substance: CARBOPLATIN
     Indication: MUCOEPIDERMOID CARCINOMA OF SALIVARY GLAND
     Dosage: CYCLICAL THERAPY GIVEN EVERY THREE WEEKS
     Route: 065
  2. PACLITAXEL. [Suspect]
     Active Substance: PACLITAXEL
     Indication: MUCOEPIDERMOID CARCINOMA OF SALIVARY GLAND
     Dosage: CYCLICAL THERAPY (175 MG/M^2 GIVEN EVERY THREE WEEKS)
     Route: 065

REACTIONS (3)
  - Neuropathy peripheral [Unknown]
  - Therapeutic response decreased [Unknown]
  - Thrombocytopenia [Unknown]
